FAERS Safety Report 16671434 (Version 4)
Quarter: 2022Q3

REPORT INFORMATION
  Report Type: Report from Study
  Country: JP (occurrence: JP)
  Receive Date: 20190806
  Receipt Date: 20220822
  Transmission Date: 20221027
  Serious: Yes (Hospitalization)
  Sender: FDA-Public Use
  Company Number: JP-ABBVIE-19S-087-2618579-00

PATIENT
  Age: 67 Year
  Sex: Female
  Weight: 59 kg

DRUGS (10)
  1. CARBIDOPA\LEVODOPA [Suspect]
     Active Substance: CARBIDOPA\LEVODOPA
     Indication: Parkinson^s disease
     Dosage: MD: 3 ML CD: 2 ML/HR X 16 HRS
     Route: 050
     Dates: start: 20181204, end: 20181216
  2. CARBIDOPA\LEVODOPA [Suspect]
     Active Substance: CARBIDOPA\LEVODOPA
     Dosage: ABOUT 38 TO 40 ML/DAY MD: 6 ML CD: 2.1 ML/HR X 16 HRS
     Route: 050
     Dates: start: 20181217, end: 20181222
  3. CARBIDOPA\LEVODOPA [Suspect]
     Active Substance: CARBIDOPA\LEVODOPA
     Dosage: MD: 6.5 ML CD: 2.2 ML/HR X 16 HRS ED: 1 ML/UNIT X 1
     Route: 050
     Dates: start: 20181222, end: 20190205
  4. CARBIDOPA\LEVODOPA [Suspect]
     Active Substance: CARBIDOPA\LEVODOPA
     Dosage: MD: 6.5 ML CD: 2.4 ML/HR X 16 HRS ED: 1 ML/UNIT X 1
     Route: 050
     Dates: start: 20190205, end: 20190305
  5. CARBIDOPA\LEVODOPA [Suspect]
     Active Substance: CARBIDOPA\LEVODOPA
     Dosage: MD: 6.5 ML CD: 2.5 ML/HR X 16 HRS ED: 1 ML/UNIT X 1
     Route: 050
     Dates: start: 20190305, end: 20190806
  6. CARBIDOPA\LEVODOPA [Suspect]
     Active Substance: CARBIDOPA\LEVODOPA
     Dosage: MD: 8.5 ML, CD: 2.5 ML/HR  16 HRS, ED: 1 ML/UNIT - 1
     Route: 050
     Dates: start: 20190803
  7. ROTIGOTINE [Concomitant]
     Active Substance: ROTIGOTINE
     Indication: Parkinson^s disease
     Dosage: EVERY DAY
     Route: 062
     Dates: end: 20181212
  8. ROTIGOTINE [Concomitant]
     Active Substance: ROTIGOTINE
     Route: 062
     Dates: start: 20181213, end: 20181219
  9. ROTIGOTINE [Concomitant]
     Active Substance: ROTIGOTINE
     Route: 062
     Dates: start: 20181220, end: 20190722
  10. CLONAZEPAM [Concomitant]
     Active Substance: CLONAZEPAM
     Indication: Product used for unknown indication
     Route: 048

REACTIONS (14)
  - Physical deconditioning [Unknown]
  - Mobility decreased [Recovering/Resolving]
  - Medical device site papule [Recovering/Resolving]
  - Medical device pain [Unknown]
  - Ageusia [Unknown]
  - Decreased appetite [Unknown]
  - Pain [Unknown]
  - Insomnia [Unknown]
  - Weight decreased [Unknown]
  - Hypoaesthesia [Unknown]
  - Dysgeusia [Not Recovered/Not Resolved]
  - Constipation [Unknown]
  - Stoma site discharge [Recovering/Resolving]
  - Stoma site extravasation [Recovering/Resolving]
